FAERS Safety Report 5758428-3 (Version None)
Quarter: 2008Q2

REPORT INFORMATION
  Report Type: 
  Country: None (occurrence: None)
  Receive Date: 20080604
  Receipt Date: 20080603
  Transmission Date: 20081010
  Serious: Yes (Other)
  Sender: FDA-Public Use
  Company Number: A0722560A

PATIENT
  Sex: Female

DRUGS (1)
  1. ALLI [Suspect]
     Indication: DRUG USE FOR UNKNOWN INDICATION
     Route: 048

REACTIONS (17)
  - ALOPECIA [None]
  - BACK DISORDER [None]
  - BACK INJURY [None]
  - BACK PAIN [None]
  - BINGE EATING [None]
  - CHEST PAIN [None]
  - COUGH [None]
  - DRUG EFFECT DECREASED [None]
  - HYPERPHAGIA [None]
  - HYPERTHYROIDISM [None]
  - JOINT INJURY [None]
  - MALAISE [None]
  - MULTIPLE ALLERGIES [None]
  - NASOPHARYNGITIS [None]
  - PHARYNGOLARYNGEAL PAIN [None]
  - RHINORRHOEA [None]
  - WEIGHT FLUCTUATION [None]
